FAERS Safety Report 9055450 (Version 1)
Quarter: 2013Q1

REPORT INFORMATION
  Report Type: Spontaneous
  Country: US (occurrence: US)
  Receive Date: 20130206
  Receipt Date: 20130206
  Transmission Date: 20140127
  Serious: Yes (Hospitalization, Disabling, Other)
  Sender: FDA-Public Use
  Company Number: US-BAYER-2013-012445

PATIENT
  Age: 59 Year
  Sex: Male
  Weight: 75.74 kg

DRUGS (14)
  1. CIPRO [Suspect]
     Indication: ENTEROCOLITIS INFECTIOUS
     Dosage: UNK
     Dates: end: 2012
  2. HUMIRA [Suspect]
     Indication: CROHN^S DISEASE
     Dosage: UNK
     Dates: start: 201010, end: 201103
  3. HUMIRA [Suspect]
     Indication: CROHN^S DISEASE
     Dosage: UNK
     Dates: start: 201207, end: 201207
  4. HUMIRA [Suspect]
     Indication: CROHN^S DISEASE
     Dosage: UNK
     Dates: start: 2012, end: 2012
  5. HUMIRA [Suspect]
     Indication: CROHN^S DISEASE
     Dosage: UNK
     Dates: start: 2012
  6. HUMIRA [Suspect]
     Indication: CROHN^S DISEASE
     Dosage: UNK
     Dates: start: 201009, end: 201103
  7. ENTOCORT [Concomitant]
     Dosage: 6 MG, UNK
  8. VITAMIN D [ERGOCALCIFEROL] [Concomitant]
     Indication: VITAMIN SUPPLEMENTATION
     Dosage: LARGE AMOUNTS
  9. CALCIUM [CALCIUM CARBONATE] [Concomitant]
     Indication: SUPPLEMENTATION THERAPY
     Dosage: UNK
  10. FISH OIL [Concomitant]
     Indication: SUPPLEMENTATION THERAPY
     Dosage: UNK
  11. TESTOSTERONE [Concomitant]
     Indication: MUSCLE ATROPHY
     Dosage: UNK
  12. PROBIOTIC NOS [Concomitant]
     Indication: SUPPLEMENTATION THERAPY
     Dosage: UNK
  13. VITAMIN C [ASCORBIC ACID] [Concomitant]
     Indication: VITAMIN SUPPLEMENTATION
     Dosage: LARGE AMOUNT
  14. VITAMIN A [RETINOL] [Concomitant]
     Indication: VITAMIN SUPPLEMENTATION
     Dosage: LARGE AMOUNT

REACTIONS (24)
  - Calculus bladder [None]
  - Intestinal haemorrhage [Recovered/Resolved]
  - Crohn^s disease [None]
  - Cholelithiasis [None]
  - Cardiac disorder [Recovered/Resolved]
  - Enteritis infectious [None]
  - Diarrhoea [None]
  - Dizziness [None]
  - Blood disorder [None]
  - Skin exfoliation [Recovered/Resolved]
  - Gastrointestinal ulcer [Recovered/Resolved]
  - Haemoglobin decreased [Recovered/Resolved]
  - Loss of consciousness [Recovered/Resolved]
  - Blood iron decreased [Recovered/Resolved]
  - Weight decreased [None]
  - Muscle atrophy [None]
  - Drug dose omission [None]
  - Fistula [None]
  - Abscess [None]
  - Oedema peripheral [Recovered/Resolved]
  - Joint swelling [Recovered/Resolved]
  - Abdominal discomfort [Recovered/Resolved]
  - Dehydration [None]
  - Dizziness [None]
